FAERS Safety Report 25514878 (Version 1)
Quarter: 2025Q3

REPORT INFORMATION
  Report Type: Spontaneous
  Country: US (occurrence: US)
  Receive Date: 20250703
  Receipt Date: 20250703
  Transmission Date: 20251020
  Serious: No
  Sender: RADIUS PHARM
  Company Number: US-RADIUS HEALTH, INC.-2023US005904

PATIENT
  Age: 65 Year
  Sex: Female

DRUGS (1)
  1. TYMLOS [Suspect]
     Active Substance: ABALOPARATIDE
     Indication: Product used for unknown indication
     Route: 058
     Dates: start: 20230906

REACTIONS (6)
  - Palpitations [Unknown]
  - Therapy interrupted [Recovered/Resolved]
  - Product storage error [Recovered/Resolved]
  - Injection site bruising [Unknown]
  - Micturition urgency [Unknown]
  - Blood creatinine increased [Unknown]

NARRATIVE: CASE EVENT DATE: 20240303
